FAERS Safety Report 5653587-5 (Version None)
Quarter: 2008Q1

REPORT INFORMATION
  Report Type: 
  Country: None (occurrence: None)
  Receive Date: 20080306
  Receipt Date: 20080224
  Transmission Date: 20080703
  Serious: Yes (Other)
  Sender: FDA-Public Use
  Company Number: US-JNJFOC-20080206501

PATIENT
  Sex: Male
  Weight: 92.99 kg

DRUGS (7)
  1. DURAGESIC-100 [Suspect]
     Route: 062
  2. DURAGESIC-100 [Suspect]
     Route: 062
  3. DURAGESIC-100 [Suspect]
     Indication: FIBROMYALGIA
     Route: 062
  4. WELLBUTRIN [Concomitant]
     Indication: DEPRESSION
     Route: 048
  5. CYMBALTA [Concomitant]
     Indication: FIBROMYALGIA
     Route: 048
  6. LYRICA [Concomitant]
     Indication: FIBROMYALGIA
     Route: 048
  7. PROVIGIL [Concomitant]
     Route: 048

REACTIONS (6)
  - APPLICATION SITE BLEEDING [None]
  - APPLICATION SITE IRRITATION [None]
  - APPLICATION SITE RASH [None]
  - BLOOD PRESSURE INCREASED [None]
  - DRUG INEFFECTIVE [None]
  - WRONG TECHNIQUE IN DRUG USAGE PROCESS [None]
